FAERS Safety Report 8076469-0 (Version None)
Quarter: 2012Q1

REPORT INFORMATION
  Report Type: 
  Country: None (occurrence: None)
  Receive Date: 20120127
  Receipt Date: 20120120
  Transmission Date: 20120608
  Serious: Yes (Hospitalization)
  Sender: FDA-Public Use
  Company Number: TR-GENZYME-THYR-1000595

PATIENT
  Sex: Female
  Weight: 80 kg

DRUGS (4)
  1. ATORVASTATIN [Concomitant]
     Indication: HYPERCHOLESTEROLAEMIA
     Dosage: 20 MG, QD
     Route: 065
  2. LEVOTHYROXINE SODIUM [Concomitant]
     Indication: HORMONE SUPPRESSION THERAPY
     Dosage: 250 MCG, QD
     Route: 065
  3. THYROGEN [Suspect]
     Indication: DIAGNOSTIC PROCEDURE
     Dosage: 0.9 MG, ONCE
     Route: 030
     Dates: start: 20111216, end: 20111216
  4. RADIOACTIVE IODINE SOLUTION [Suspect]
     Indication: PRODUCT USED FOR UNKNOWN INDICATION
     Dosage: 5 MCI, UNK
     Route: 065
     Dates: start: 20111218, end: 20111218

REACTIONS (6)
  - VERTIGO [None]
  - NAUSEA [None]
  - DIZZINESS [None]
  - VOMITING [None]
  - PRESYNCOPE [None]
  - BURNING SENSATION [None]
